FAERS Safety Report 21807247 (Version 3)
Quarter: 2024Q2

REPORT INFORMATION
  Report Type: Report from Study
  Country: US (occurrence: US)
  Receive Date: 20230102
  Receipt Date: 20240618
  Transmission Date: 20240716
  Serious: Yes (Hospitalization, Other)
  Sender: FDA-Public Use
  Company Number: US-ABBVIE-4255080

PATIENT
  Age: 74 Year
  Sex: Female

DRUGS (2)
  1. HUMIRA [Suspect]
     Active Substance: ADALIMUMAB
     Indication: Uveitis
     Dosage: FORM STRENGTH 40 MILLIGRAM
     Route: 058
     Dates: start: 20190801
  2. HUMIRA [Suspect]
     Active Substance: ADALIMUMAB
     Dosage: FORM STRENGTH 40 MILLIGRAM
     Route: 058

REACTIONS (16)
  - Blood pressure increased [Unknown]
  - Cough [Unknown]
  - Dizziness [Unknown]
  - Blood potassium decreased [Unknown]
  - Balance disorder [Unknown]
  - Blood electrolytes decreased [Unknown]
  - Nasopharyngitis [Recovering/Resolving]
  - Weight decreased [Unknown]
  - Vomiting [Unknown]
  - Blood magnesium decreased [Unknown]
  - Device expulsion [Unknown]
  - Dry throat [Unknown]
  - Rhinorrhoea [Not Recovered/Not Resolved]
  - Eye pain [Unknown]
  - Deafness unilateral [Unknown]
  - Diarrhoea [Unknown]

NARRATIVE: CASE EVENT DATE: 20240201
